FAERS Safety Report 6233585-3 (Version None)
Quarter: 2009Q2

REPORT INFORMATION
  Report Type: 
  Country: None (occurrence: None)
  Receive Date: 20090617
  Receipt Date: 20090612
  Transmission Date: 20091009
  Serious: Yes (Death)
  Sender: FDA-Public Use
  Company Number: US-GILEAD-2009-0022587

PATIENT
  Sex: Female
  Weight: 85.806 kg

DRUGS (14)
  1. LETAIRIS [Suspect]
     Indication: PULMONARY ARTERIAL HYPERTENSION
     Route: 048
     Dates: start: 20080105
  2. REVATIO [Concomitant]
  3. REMODULIN [Concomitant]
  4. COUMADIN [Concomitant]
  5. LASIX [Concomitant]
  6. OMNARIS [Concomitant]
  7. CLARITIN [Concomitant]
  8. FERROUS SULFATE TAB [Concomitant]
  9. DARVOCET-N 100 [Concomitant]
  10. VITAMIN D [Concomitant]
  11. ASCORBIC ACID [Concomitant]
  12. MULTI-VITAMINS [Concomitant]
  13. SLOW-MAG [Concomitant]
  14. POTASSIUM CHLORIDE [Concomitant]

REACTIONS (1)
  - DEATH [None]
